FAERS Safety Report 21483892 (Version 1)
Quarter: 2022Q4

REPORT INFORMATION
  Report Type: Spontaneous
  Country: US (occurrence: US)
  Receive Date: 20221020
  Receipt Date: 20221020
  Transmission Date: 20230113
  Serious: Yes (Other)
  Sender: FDA-Public Use
  Company Number: US-TEVA-2022-US-2816265

PATIENT
  Sex: Male

DRUGS (1)
  1. PROGLYCEM [Suspect]
     Active Substance: DIAZOXIDE
     Indication: Hypoglycaemia
     Route: 048

REACTIONS (4)
  - Metastasis [Unknown]
  - Nausea [Unknown]
  - Vomiting projectile [Unknown]
  - Incorrect dose administered [Unknown]
